FAERS Safety Report 17079134 (Version 2)
Quarter: 2020Q2

REPORT INFORMATION
  Report Type: Spontaneous
  Country: US (occurrence: US)
  Receive Date: 20191127
  Receipt Date: 20200526
  Transmission Date: 20200713
  Serious: No
  Sender: FDA-Public Use
  Company Number: US-UCBSA-2019003212

PATIENT
  Sex: Female

DRUGS (1)
  1. CIMZIA [Suspect]
     Active Substance: CERTOLIZUMAB PEGOL
     Indication: PSORIASIS
     Dosage: UNKNOWN DOSE
     Dates: start: 20170119

REACTIONS (4)
  - Abdominal discomfort [Unknown]
  - Dry skin [Unknown]
  - Hair texture abnormal [Unknown]
  - Onychoclasis [Unknown]
